FAERS Safety Report 5113027-1 (Version None)
Quarter: 2006Q3

REPORT INFORMATION
  Report Type: 
  Country: None (occurrence: None)
  Receive Date: 20060921
  Receipt Date: 20060921
  Transmission Date: 20061208
  Serious: Yes (Life-Threatening, Hospitalization)
  Sender: FDA-Public Use
  Company Number: None

PATIENT
  Age: 23 Year
  Sex: Male
  Weight: 61.2356 kg

DRUGS (1)
  1. XANAX XR [Suspect]
     Indication: DRUG DEPENDENCE
     Dosage: .25 I BELIEVE  MAYBE 50 ONCE DAILY

REACTIONS (2)
  - DRUG DEPENDENCE [None]
  - DRUG WITHDRAWAL SYNDROME [None]
